FAERS Safety Report 25086298 (Version 1)
Quarter: 2025Q1

REPORT INFORMATION
  Report Type: Spontaneous
  Country: US (occurrence: US)
  Receive Date: 20250317
  Receipt Date: 20250317
  Transmission Date: 20250409
  Serious: Yes (Hospitalization, Other)
  Sender: SANDOZ
  Company Number: US-SANDOZ-SDZ2025US015329

PATIENT
  Age: 37 Year
  Sex: Female

DRUGS (2)
  1. METHYLPHENIDATE [Suspect]
     Active Substance: METHYLPHENIDATE
     Indication: Narcolepsy
     Route: 042
  2. METHYLPHENIDATE [Suspect]
     Active Substance: METHYLPHENIDATE
     Indication: Attention deficit hyperactivity disorder

REACTIONS (8)
  - Acute right ventricular failure [Recovered/Resolved]
  - Deep vein thrombosis [Unknown]
  - Pulmonary hypertension [Unknown]
  - Acute respiratory failure [Unknown]
  - Bacteraemia [Unknown]
  - Drug abuse [Unknown]
  - Intentional product use issue [Unknown]
  - Wrong technique in product usage process [Unknown]
